FAERS Safety Report 24014396 (Version 2)
Quarter: 2024Q3

REPORT INFORMATION
  Report Type: Spontaneous
  Country: RU (occurrence: RU)
  Receive Date: 20240626
  Receipt Date: 20240709
  Transmission Date: 20241017
  Serious: Yes (Death)
  Sender: ABBVIE
  Company Number: RU-ABBVIE-5814960

PATIENT
  Age: 5 Year
  Sex: Female
  Weight: 16 kg

DRUGS (15)
  1. SEVOFLURANE [Suspect]
     Active Substance: SEVOFLURANE
     Indication: Appendicectomy
     Dosage: 6.0
     Route: 055
     Dates: start: 20240326, end: 20240326
  2. DIPHENHYDRAMINE [Concomitant]
     Active Substance: DIPHENHYDRAMINE
     Indication: Appendicectomy
     Dosage: 1% -0.5 ML SOLUTION
     Dates: start: 20240326, end: 20240326
  3. FENTANYL [Suspect]
     Active Substance: FENTANYL\FENTANYL CITRATE
     Indication: Appendicectomy
     Dosage: 2.0
     Route: 042
     Dates: start: 20240326, end: 20240326
  4. ROCURONIUM BROMIDE [Suspect]
     Active Substance: ROCURONIUM BROMIDE
     Indication: Appendicectomy
     Dosage: 25 MG
     Route: 042
     Dates: start: 20240326, end: 20240326
  5. PROMEDOLUM [Concomitant]
     Indication: Product used for unknown indication
     Dosage: 5
  6. ATROPINE [Concomitant]
     Active Substance: ATROPINE
     Indication: Appendicectomy
     Dosage: 0.1% -0.1 ML?SOLUTION
     Dates: start: 20240326, end: 20240326
  7. NITRIC OXIDE [Concomitant]
     Active Substance: NITRIC OXIDE
     Indication: Anaesthesia
     Dosage: 1 L. PER MINUTE DI
     Route: 055
     Dates: start: 20240326, end: 20240326
  8. RINGERS SOLUTION [Concomitant]
     Active Substance: CALCIUM CHLORIDE\POTASSIUM CHLORIDE\SODIUM CHLORIDE
     Indication: Product used for unknown indication
     Dosage: 250 ML? (COMPOUND SOLUTION OF SODIUM CHLORIDE)
  9. PROPOFOL [Suspect]
     Active Substance: PROPOFOL
     Indication: Appendicectomy
     Route: 042
     Dates: start: 20240326, end: 20240326
  10. HEPTRAL [Concomitant]
     Active Substance: ADEMETIONINE
     Indication: Product used for unknown indication
     Dosage: 200
  11. OXYGEN [Concomitant]
     Active Substance: OXYGEN
     Indication: Anaesthesia
     Dosage: 1 L. PER MINUTE
     Route: 055
     Dates: start: 20240326, end: 20240326
  12. CEFTRIAXONE [Concomitant]
     Active Substance: CEFTRIAXONE\CEFTRIAXONE SODIUM
     Indication: Product used for unknown indication
  13. CEFTRIAXONE [Concomitant]
     Active Substance: CEFTRIAXONE\CEFTRIAXONE SODIUM
     Indication: Product used for unknown indication
  14. SODIUM CHLORIDE [Concomitant]
     Active Substance: SODIUM CHLORIDE
     Indication: Anaesthesia
     Dosage: 250 ML
  15. SODIUM CHLORIDE [Concomitant]
     Active Substance: SODIUM CHLORIDE
     Indication: Anaesthesia
     Dosage: 0.9% 500 ML
     Dates: start: 20240326, end: 20240326

REACTIONS (9)
  - Cardiac arrest [Fatal]
  - Illness [Fatal]
  - Post procedural complication [Fatal]
  - Coma [Fatal]
  - Omentitis [Fatal]
  - Duodenal ulcer perforation [Fatal]
  - Hypoxic-ischaemic encephalopathy [Fatal]
  - Post procedural complication [Fatal]
  - Peritonitis [Fatal]

NARRATIVE: CASE EVENT DATE: 20240101
